FAERS Safety Report 7677109-2 (Version None)
Quarter: 2011Q3

REPORT INFORMATION
  Report Type: 
  Country: None (occurrence: None)
  Receive Date: 20110811
  Receipt Date: 20110719
  Transmission Date: 20111222
  Serious: No
  Sender: FDA-Public Use
  Company Number: US-TYCO HEALTHCARE/MALLINCKRODT-T201101459

PATIENT
  Sex: Female
  Weight: 68.027 kg

DRUGS (36)
  1. ESTAZOLAM [Concomitant]
     Dosage: 2 MG, UNK
  2. SPIRIVA [Concomitant]
     Dosage: 1 CAP IN PUFFER QD
  3. ZOFRAN [Concomitant]
     Indication: VOMITING
     Dosage: 8 MG, BID PRN
     Route: 048
  4. LOMOTIL                            /00034001/ [Concomitant]
     Dosage: UNK
  5. OXYCONTIN [Concomitant]
     Indication: BREAKTHROUGH PAIN
     Dosage: 5 MG, TID
     Route: 048
  6. NOVOLOG [Concomitant]
     Indication: DIABETES MELLITUS
     Dosage: SLIDING SCALE
     Route: 058
  7. SIMETHICONE [Concomitant]
     Indication: FLATULENCE
     Dosage: 180 MG, UNK
     Route: 048
  8. METOPROLOL TARTRATE [Concomitant]
     Indication: SINUS TACHYCARDIA
     Dosage: 25 MG, BID
     Route: 048
  9. VISTARIL                           /00058402/ [Concomitant]
     Dosage: 25 TO 50 MG Q6 PRN
     Route: 048
  10. VITAMIN B12                        /00056201/ [Concomitant]
     Dosage: 1500 MCG QD
     Route: 048
  11. BENZONATATE [Concomitant]
     Dosage: 200 MG, TID PRN
     Route: 048
  12. ZYRTEC [Concomitant]
     Indication: HYPERSENSITIVITY
     Dosage: 10 MG, QD
     Route: 048
  13. METFORMIN HCL [Concomitant]
     Indication: DIABETES MELLITUS
     Dosage: 1000 MG, BID
     Route: 048
  14. ROBAXIN [Concomitant]
     Indication: MUSCLE RELAXANT THERAPY
     Dosage: 750 MG, QID
     Route: 048
  15. EXALGO [Suspect]
     Indication: BACK PAIN
     Dosage: 12 MG, QD
     Route: 048
     Dates: start: 20110412, end: 20110509
  16. LEVEMIR [Concomitant]
     Indication: DIABETES MELLITUS
     Dosage: 20 UNITS AM, 20 UNITS PM
     Route: 058
  17. ALLEGRA-D                          /01367401/ [Concomitant]
     Dosage: 1 TAB QD
  18. MIACALCIN [Concomitant]
     Dosage: 1 SPRAY QD
  19. ZANTAC                             /00550802/ [Concomitant]
     Dosage: 300 MG, BID
     Route: 048
  20. PROSOM [Suspect]
     Dosage: 4 MG, QHS
     Route: 048
  21. EXALGO [Suspect]
     Dosage: 8 MG QD
     Route: 048
     Dates: start: 20110510, end: 20110515
  22. EXALGO [Suspect]
     Dosage: 12 MG QD
     Route: 048
     Dates: start: 20110516
  23. SINGULAIR [Concomitant]
     Indication: ASTHMA
     Dosage: 10 MG, QD
     Route: 048
  24. LOPRESSOR [Concomitant]
     Indication: SINUS TACHYCARDIA
     Dosage: 25 MG, BID
     Route: 048
  25. MYLANTA/BENADRYL/2% LIDOCAINE [Concomitant]
     Dosage: 15/30 ML Q4/PRN
     Route: 048
  26. LIDODERM [Concomitant]
     Dosage: UNK
  27. NEURONTIN [Concomitant]
     Indication: DIABETIC NEUROPATHY
     Dosage: 200 MG, TID
     Route: 048
  28. REQUIP [Concomitant]
     Indication: RESTLESS LEGS SYNDROME
     Dosage: 4 MG QHS, 2 MG QD
     Route: 048
  29. ASPIRIN [Concomitant]
     Dosage: 81 MG, QDHS
     Route: 048
  30. ADVAIR DISKUS 100/50 [Concomitant]
     Dosage: 250/50 MG ONE INHALATION BID
     Route: 048
  31. NITROLINGUAL [Concomitant]
     Dosage: PUMP SPRAY PRN
  32. PROVENTIL                          /00139501/ [Concomitant]
     Dosage: 90 MCG Q6 PRN
  33. ARTHROTEC [Concomitant]
     Dosage: 75 MG, UNK
  34. BETAMETHASONE [Concomitant]
     Indication: RASH
     Dosage: 0.05% PRN
     Route: 061
  35. JANUVIA [Concomitant]
     Indication: DIABETES MELLITUS
     Dosage: 100 MG, QD
     Route: 048
  36. ASTEPRO [Concomitant]
     Indication: HYPERSENSITIVITY
     Dosage: 15%/205.5 MCG BID
     Route: 045

REACTIONS (3)
  - DRUG INEFFECTIVE [None]
  - DYSGEUSIA [None]
  - DRUG PRESCRIBING ERROR [None]
